FAERS Safety Report 9378129 (Version 2)
Quarter: 2013Q4

REPORT INFORMATION
  Report Type: Spontaneous
  Country: GB (occurrence: None)
  Receive Date: 20130625
  Receipt Date: 20131018
  Transmission Date: 20140711
  Serious: Yes (Hospitalization, Other)
  Sender: FDA-Public Use
  Company Number: AUR-APL-2013-05055

PATIENT
  Age: 34 Year
  Sex: Female

DRUGS (2)
  1. RIBAVIRIN (RIBAVIRIN) [Suspect]
     Indication: VIRAL HEPATITIS CARRIER
     Route: 048
     Dates: start: 20130101, end: 20130301
  2. TELAPREVIR (TELAPREVIR) [Suspect]
     Route: 048
     Dates: start: 20130101, end: 20130301

REACTIONS (6)
  - Rash [None]
  - Mucosal inflammation [None]
  - Malaise [None]
  - Eosinophilia [None]
  - Fatigue [None]
  - Chills [None]
